FAERS Safety Report 13072023 (Version 2)
Quarter: 2017Q1

REPORT INFORMATION
  Report Type: Spontaneous
  Country: US (occurrence: US)
  Receive Date: 20161229
  Receipt Date: 20170210
  Transmission Date: 20170428
  Serious: Yes (Death, Other)
  Sender: FDA-Public Use
  Company Number: US-PFIZER INC-2016601025

PATIENT
  Age: 61 Year
  Sex: Male

DRUGS (1)
  1. VIAGRA [Suspect]
     Active Substance: SILDENAFIL CITRATE
     Indication: PROSTATE CANCER
     Dosage: UNK

REACTIONS (2)
  - Product use issue [Unknown]
  - Neoplasm malignant [Fatal]
